FAERS Safety Report 10334951 (Version 4)
Quarter: 2014Q3

REPORT INFORMATION
  Report Type: Spontaneous
  Country: US (occurrence: None)
  Receive Date: 20140721
  Receipt Date: 20140905
  Transmission Date: 20150326
  Serious: Yes (Other)
  Sender: FDA-Public Use
  Company Number: 2014-US-008615

PATIENT
  Age: 46 Year
  Sex: Female
  Weight: 52.2 kg

DRUGS (9)
  1. LAMICTAL [Concomitant]
     Active Substance: LAMOTRIGINE
  2. RITALIN [Concomitant]
     Active Substance: METHYLPHENIDATE HYDROCHLORIDE
  3. CYMBALTA [Concomitant]
     Active Substance: DULOXETINE HYDROCHLORIDE
  4. VITAMIN D (COLECALCIFEROL) [Concomitant]
  5. XYREM [Suspect]
     Active Substance: SODIUM OXYBATE
     Indication: NARCOLEPSY
     Route: 048
     Dates: start: 201405, end: 201406
  6. XYREM [Suspect]
     Active Substance: SODIUM OXYBATE
     Indication: CATAPLEXY
     Route: 048
     Dates: start: 201405, end: 201406
  7. PENICILLIN (BENZYLPENICILLIN POTASSIUM) [Concomitant]
     Active Substance: PENICILLIN
  8. SOMA [Concomitant]
     Active Substance: CARISOPRODOL
  9. AUBAGIO (TERIFLUNOMIDE) [Concomitant]

REACTIONS (7)
  - Drug ineffective [None]
  - Viral infection [None]
  - Gastroenteritis viral [None]
  - Oesophageal rupture [None]
  - Body temperature increased [None]
  - Nausea [None]
  - Vomiting [None]

NARRATIVE: CASE EVENT DATE: 201406
